FAERS Safety Report 5465362-5 (Version None)
Quarter: 2007Q3

REPORT INFORMATION
  Report Type: 
  Country: None (occurrence: None)
  Receive Date: 20070920
  Receipt Date: 20070911
  Transmission Date: 20080115
  Serious: Yes (Hospitalization)
  Sender: FDA-Public Use
  Company Number: 235895K07USA

PATIENT
  Age: 63 Year
  Sex: Female

DRUGS (6)
  1. REBIF [Suspect]
     Indication: MULTIPLE SCLEROSIS
     Dosage: 44 MCG, 3 IN 1 WEEKS, SUBCUTANEOUS
     Route: 058
     Dates: start: 20061208
  2. ACTOS [Concomitant]
  3. GLUCOPHAGE (METFORMIN /00082701/) [Concomitant]
  4. GLIPIZIDE [Concomitant]
  5. METAMUCIL (PLANTAGO OVATA) [Concomitant]
  6. IRON (IRON) [Concomitant]

REACTIONS (7)
  - DEHYDRATION [None]
  - DIARRHOEA [None]
  - DIZZINESS [None]
  - HEADACHE [None]
  - INFLUENZA [None]
  - VISION BLURRED [None]
  - VOMITING [None]
